FAERS Safety Report 4920930-1 (Version None)
Quarter: 2006Q1

REPORT INFORMATION
  Report Type: 
  Country: None (occurrence: None)
  Receive Date: 20060223
  Receipt Date: 20051014
  Transmission Date: 20060701
  Serious: Yes (Death, Hospitalization)
  Sender: FDA-Public Use
  Company Number: US-MERCK-0510USA07255

PATIENT
  Age: 48 Year
  Sex: Male
  Weight: 82 kg

DRUGS (6)
  1. VIOXX [Suspect]
     Indication: PAIN
     Route: 048
     Dates: start: 20000501, end: 20000501
  2. VIOXX [Suspect]
     Route: 048
     Dates: start: 20000501, end: 20001227
  3. VIOXX [Suspect]
     Indication: BACK INJURY
     Route: 048
     Dates: start: 20000501, end: 20000501
  4. VIOXX [Suspect]
     Route: 048
     Dates: start: 20000501, end: 20001227
  5. LORTAB [Concomitant]
     Route: 065
  6. [THERAPY UNSPECIFIED] [Concomitant]
     Indication: HYPERTENSION
     Route: 065

REACTIONS (5)
  - ACUTE MYOCARDIAL INFARCTION [None]
  - ANOXIC ENCEPHALOPATHY [None]
  - CARDIAC ARREST [None]
  - PNEUMONIA ASPIRATION [None]
  - SEPTIC SHOCK [None]
